FAERS Safety Report 7348642 (Version 3)
Quarter: 2013Q1

REPORT INFORMATION
  Report Type: Report from Study
  Country: US (occurrence: US)
  Receive Date: 20100408
  Receipt Date: 20130211
  Transmission Date: 20140127
  Serious: Yes (Other)
  Sender: FDA-Public Use
  Company Number: US-RB-005949-10

PATIENT
  Age: 0 None
  Sex: Male

DRUGS (1)
  1. SUBOXONE [Suspect]
     Indication: DRUG DEPENDENCE
     Route: 064
     Dates: start: 200711, end: 20080514

REACTIONS (2)
  - Exposure via body fluid [Recovered/Resolved]
  - Premature baby [Recovered/Resolved]
